FAERS Safety Report 4765205-9 (Version None)
Quarter: 2005Q3

REPORT INFORMATION
  Report Type: 
  Country: None (occurrence: None)
  Receive Date: 20050906
  Receipt Date: 20050825
  Transmission Date: 20060218
  Serious: Yes (Other)
  Sender: FDA-Public Use
  Company Number: 2005119650

PATIENT
  Age: 48 Year
  Sex: Female
  Weight: 54.8852 kg

DRUGS (4)
  1. ZOLOFT [Suspect]
     Indication: DEPRESSION
     Dosage: 150 MG (1 IN 1 D),
  2. REMERON [Concomitant]
  3. XANAX [Concomitant]
  4. SEROQUEL [Concomitant]

REACTIONS (3)
  - BIPOLAR DISORDER [None]
  - HALLUCINATION, AUDITORY [None]
  - SCHIZOPHRENIA, PARANOID TYPE [None]
